FAERS Safety Report 22331137 (Version 4)
Quarter: 2024Q2

REPORT INFORMATION
  Report Type: Spontaneous
  Country: US (occurrence: US)
  Receive Date: 20230517
  Receipt Date: 20240531
  Transmission Date: 20240716
  Serious: No
  Sender: FDA-Public Use
  Company Number: US-ABBVIE-4767528

PATIENT
  Sex: Male

DRUGS (7)
  1. LUPRON [Suspect]
     Active Substance: LEUPROLIDE ACETATE
     Indication: Product used for unknown indication
     Route: 065
  2. XTANDI [Suspect]
     Active Substance: ENZALUTAMIDE
     Indication: Prostate cancer
     Dosage: 120 MG ONCE DAILY (40MG 3 PILLS).
     Route: 048
     Dates: start: 20230131
  3. XTANDI [Suspect]
     Active Substance: ENZALUTAMIDE
     Indication: Prostate cancer
     Dosage: 160MG ONCE DAILY (40MG 4 PILLS)
     Route: 048
     Dates: start: 20220926, end: 20230130
  4. XTANDI [Suspect]
     Active Substance: ENZALUTAMIDE
     Indication: Prostate cancer
     Dosage: 120 MG ONCE DAILY (40MG 3 PILLS).
     Route: 048
  5. XTANDI [Suspect]
     Active Substance: ENZALUTAMIDE
     Indication: Prostate cancer
     Dosage: 120 MG ONCE DAILY (40MG 3 PILLS).
     Route: 048
  6. XTANDI [Suspect]
     Active Substance: ENZALUTAMIDE
     Indication: Prostate cancer
     Dosage: 120 MG ONCE DAILY (40MG 3 PILLS)
     Route: 048
     Dates: start: 20240101
  7. XTANDI [Suspect]
     Active Substance: ENZALUTAMIDE
     Indication: Prostate cancer
     Dosage: 120 MG ONCE DAILY (40MG 3 PILLS).
     Route: 048
     Dates: start: 20240402

REACTIONS (1)
  - Hot flush [Unknown]
